FAERS Safety Report 4609597-X (Version None)
Quarter: 2005Q1

REPORT INFORMATION
  Report Type: 
  Country: None (occurrence: None)
  Receive Date: 20050316
  Receipt Date: 20040317
  Transmission Date: 20050727
  Serious: Yes (Death, Hospitalization)
  Sender: FDA-Public Use
  Company Number: 200410948JP

PATIENT
  Age: 72 Year
  Sex: Male
  Weight: 52 kg

DRUGS (9)
  1. ARAVA [Suspect]
     Indication: RHEUMATOID ARTHRITIS
     Route: 048
     Dates: start: 20040214, end: 20040307
  2. LASIX [Suspect]
     Indication: HYPERTENSION
     Route: 048
     Dates: end: 20040313
  3. PREDONINE [Concomitant]
     Indication: RHEUMATOID ARTHRITIS
     Route: 048
     Dates: start: 20040203
  4. ACECOL [Concomitant]
     Indication: HYPERTENSION
     Route: 048
     Dates: end: 20040301
  5. GASTER [Concomitant]
     Indication: PROPHYLAXIS AGAINST GASTROINTESTINAL ULCER
     Route: 048
     Dates: end: 20040313
  6. VOLTAREN [Concomitant]
     Indication: RHEUMATOID ARTHRITIS
     Route: 048
     Dates: end: 20040313
  7. SLOW-K [Concomitant]
     Indication: HYPOKALAEMIA
     Route: 048
     Dates: end: 20040301
  8. MUCOSTA [Concomitant]
     Indication: PROPHYLAXIS AGAINST GASTROINTESTINAL ULCER
     Route: 048
     Dates: end: 20040301
  9. BIOFERMIN [Concomitant]
     Indication: CONSTIPATION
     Route: 048
     Dates: end: 20041101

REACTIONS (21)
  - BLOOD ALBUMIN DECREASED [None]
  - BLOOD ALKALINE PHOSPHATASE INCREASED [None]
  - BLOOD CALCIUM DECREASED [None]
  - BLOOD FIBRINOGEN INCREASED [None]
  - BLOOD LACTATE DEHYDROGENASE INCREASED [None]
  - BLOOD SODIUM DECREASED [None]
  - BLOOD UREA INCREASED [None]
  - BLOOD URINE PRESENT [None]
  - FIBRIN D DIMER DECREASED [None]
  - HAEMOGLOBIN DECREASED [None]
  - HYPOKALAEMIA [None]
  - INFECTION [None]
  - INTERNATIONAL NORMALISED RATIO DECREASED [None]
  - PNEUMONIA [None]
  - PROTEIN URINE PRESENT [None]
  - PROTHROMBIN TIME SHORTENED [None]
  - PYREXIA [None]
  - RED BLOOD CELL COUNT DECREASED [None]
  - SUBARACHNOID HAEMORRHAGE [None]
  - URINARY CASTS [None]
  - WHITE BLOOD CELLS URINE POSITIVE [None]
